FAERS Safety Report 6749849-0 (Version None)
Quarter: 2010Q2

REPORT INFORMATION
  Report Type: 
  Country: None (occurrence: None)
  Receive Date: 20100601
  Receipt Date: 20100525
  Transmission Date: 20101027
  Serious: Yes (Other)
  Sender: FDA-Public Use
  Company Number: JP-SP-2010-02988

PATIENT
  Age: 70 Year
  Sex: Male

DRUGS (2)
  1. IMMUCYST [Suspect]
     Indication: BLADDER CANCER
     Route: 065
     Dates: start: 20091101
  2. BCG  THERAPEUTICS [Suspect]
     Indication: BLADDER CANCER RECURRENT
     Route: 065

REACTIONS (2)
  - BLADDER CANCER RECURRENT [None]
  - INTERSTITIAL LUNG DISEASE [None]
